FAERS Safety Report 25062609 (Version 4)
Quarter: 2025Q2

REPORT INFORMATION
  Report Type: Report from Study
  Country: CO (occurrence: CO)
  Receive Date: 20250311
  Receipt Date: 20250410
  Transmission Date: 20250717
  Serious: Yes (Hospitalization, Other)
  Sender: AMGEN
  Company Number: CO-AMGEN-COLSL2024245300

PATIENT
  Age: 74 Year
  Sex: Female
  Weight: 59.9 kg

DRUGS (3)
  1. VECTIBIX [Suspect]
     Active Substance: PANITUMUMAB
     Indication: Colorectal cancer metastatic
     Dosage: 567 MILLIGRAM, Q3WK (EVERY 21 DAYS)
     Route: 040
     Dates: start: 20241209, end: 20250220
  2. OXALIPLATIN [Concomitant]
     Active Substance: OXALIPLATIN
  3. CAPECITABINE [Concomitant]
     Active Substance: CAPECITABINE

REACTIONS (24)
  - Wound [Not Recovered/Not Resolved]
  - Burning sensation [Not Recovered/Not Resolved]
  - Pustule [Not Recovered/Not Resolved]
  - Soft tissue disorder [Not Recovered/Not Resolved]
  - Hypotension [Recovered/Resolved]
  - Pain [Not Recovered/Not Resolved]
  - Asthenia [Not Recovered/Not Resolved]
  - Diarrhoea [Not Recovered/Not Resolved]
  - Dehydration [Not Recovered/Not Resolved]
  - Syncope [Unknown]
  - Disorientation [Not Recovered/Not Resolved]
  - Renal disorder [Unknown]
  - Neck pain [Not Recovered/Not Resolved]
  - Oxygen saturation decreased [Not Recovered/Not Resolved]
  - Tachycardia [Recovered/Resolved]
  - Rash [Not Recovered/Not Resolved]
  - Dry eye [Unknown]
  - Dry skin [Unknown]
  - Skin lesion [Unknown]
  - Off label use [Unknown]
  - Balance disorder [Not Recovered/Not Resolved]
  - Erythema [Recovering/Resolving]
  - Decreased appetite [Not Recovered/Not Resolved]
  - Discouragement [Not Recovered/Not Resolved]

NARRATIVE: CASE EVENT DATE: 20241209
